FAERS Safety Report 5046548-0 (Version None)
Quarter: 2006Q3

REPORT INFORMATION
  Report Type: 
  Country: None (occurrence: None)
  Receive Date: 20060706
  Receipt Date: 20060706
  Transmission Date: 20061208
  Serious: Yes (Other)
  Sender: FDA-Public Use
  Company Number: None

PATIENT
  Sex: Male
  Weight: 127.0072 kg

DRUGS (1)
  1. VISINE-A [Suspect]
     Indication: EYE PRURITUS
     Dosage: 2 DROPS 4 HOURS OPHTHALMIC
     Route: 047
     Dates: start: 20040610, end: 20040610

REACTIONS (2)
  - MYDRIASIS [None]
  - VISION BLURRED [None]
